FAERS Safety Report 8125511-7 (Version None)
Quarter: 2012Q1

REPORT INFORMATION
  Report Type: 
  Country: None (occurrence: None)
  Receive Date: 20120209
  Receipt Date: 20120202
  Transmission Date: 20120608
  Serious: Yes (Other)
  Sender: FDA-Public Use
  Company Number: PHHY2012GB009250

PATIENT

DRUGS (5)
  1. CHLORPHENIRAMINE MALEATE [Concomitant]
     Route: 064
  2. TERBUTALINE [Concomitant]
     Route: 064
  3. HYDROCORTISONE [Concomitant]
     Route: 064
  4. AMOXICILLIN AND CLAVULANATE POTASSIUM [Suspect]
     Route: 064
  5. PHENYLEPHRINE [Concomitant]
     Route: 064

REACTIONS (2)
  - FOETAL EXPOSURE DURING PREGNANCY [None]
  - FOETAL HEART RATE DECREASED [None]
